FAERS Safety Report 22180320 (Version 2)
Quarter: 2023Q2

REPORT INFORMATION
  Report Type: Spontaneous
  Country: US (occurrence: US)
  Receive Date: 20230406
  Receipt Date: 20230526
  Transmission Date: 20230722
  Serious: Yes (Hospitalization, Other)
  Sender: FDA-Public Use
  Company Number: US-PFIZER INC-PV202300061722

PATIENT
  Age: 70 Year
  Sex: Female
  Weight: 88.72 kg

DRUGS (2)
  1. RUXIENCE [Suspect]
     Active Substance: RITUXIMAB-PVVR
     Indication: Chronic lymphocytic leukaemia
     Dosage: 1000 MG, CYCLIC (D 1, 8, 15, 22 Q 6 MONTHS)
     Dates: start: 20230315
  2. VENETOCLAX [Suspect]
     Active Substance: VENETOCLAX
     Indication: Chronic lymphocytic leukaemia
     Dosage: UNK, DAILY (RAMP UP QD)
     Dates: start: 20230113, end: 20230405

REACTIONS (2)
  - Neutropenia [Recovered/Resolved]
  - Off label use [Unknown]

NARRATIVE: CASE EVENT DATE: 20230329
